FAERS Safety Report 16389301 (Version 1)
Quarter: 2019Q3

REPORT INFORMATION
  Report Type: Spontaneous
  Country: US (occurrence: US)
  Receive Date: 20190603
  Receipt Date: 20190603
  Transmission Date: 20191004
  Serious: Yes (Hospitalization)
  Sender: FDA-Public Use
  Company Number: None

PATIENT
  Age: 64 Year
  Sex: Female
  Weight: 72 kg

DRUGS (12)
  1. CBD LOTION [Concomitant]
  2. TRICORE [Concomitant]
  3. OMEPRAZOLE. [Concomitant]
     Active Substance: OMEPRAZOLE
  4. ENTERIC COATED ASPIRIN [Concomitant]
     Active Substance: ASPIRIN
  5. VIT. D [Concomitant]
  6. VIT. B-12 [Concomitant]
  7. CURCUMIN BCM-95 [Concomitant]
  8. TYLENOL [Concomitant]
     Active Substance: ACETAMINOPHEN
  9. LYRICA [Suspect]
     Active Substance: PREGABALIN
     Indication: FIBROMYALGIA
     Dosage: ?          QUANTITY:1 CAPSULE(S);?
     Route: 048
  10. ROSUVASTATIN. [Concomitant]
     Active Substance: ROSUVASTATIN
  11. BIOTIN [Concomitant]
     Active Substance: BIOTIN
  12. AMLODIPINE BESYLATE. [Concomitant]
     Active Substance: AMLODIPINE BESYLATE

REACTIONS (2)
  - Pancreatitis [None]
  - Gastrointestinal disorder [None]

NARRATIVE: CASE EVENT DATE: 20180205
